FAERS Safety Report 12308449 (Version 1)
Quarter: 2016Q2

REPORT INFORMATION
  Report Type: Spontaneous
  Country: US (occurrence: US)
  Receive Date: 20160427
  Receipt Date: 20160427
  Transmission Date: 20160815
  Serious: No
  Sender: FDA-Public Use
  Company Number: US-009507513-1604USA004514

PATIENT
  Age: 64 Year
  Sex: Female

DRUGS (7)
  1. OMEPRAZOLE. [Suspect]
     Active Substance: OMEPRAZOLE
     Dosage: UNK
     Route: 048
  2. ASCORBIC ACID. [Suspect]
     Active Substance: ASCORBIC ACID
     Dosage: UNK
     Route: 048
  3. ESTRADIOL. [Suspect]
     Active Substance: ESTRADIOL
     Dosage: UNK
     Route: 065
     Dates: start: 1998, end: 20160228
  4. ACYCLOVIR. [Suspect]
     Active Substance: ACYCLOVIR
     Dosage: UNK
     Route: 048
  5. FAMOTIDINE. [Suspect]
     Active Substance: FAMOTIDINE
     Dosage: UNK
     Route: 048
  6. ATORVASTATIN [Suspect]
     Active Substance: ATORVASTATIN
     Dosage: UNK
     Route: 048
  7. VITAMIN D [Suspect]
     Active Substance: CHOLECALCIFEROL
     Dosage: UNK
     Route: 048

REACTIONS (1)
  - Rash [Not Recovered/Not Resolved]
